FAERS Safety Report 6406461-0 (Version None)
Quarter: 2009Q4

REPORT INFORMATION
  Report Type: 
  Country: None (occurrence: None)
  Receive Date: 20091014
  Receipt Date: 20090930
  Transmission Date: 20100525
  Serious: Yes (Hospitalization, Disabling)
  Sender: FDA-Public Use
  Company Number: 2009AC000096

PATIENT
  Age: 62 Year
  Sex: Male
  Weight: 121.1104 kg

DRUGS (11)
  1. DIGOXIN [Suspect]
     Dosage: 0.25 MG,BID;PO
     Route: 048
     Dates: start: 20050101, end: 20090301
  2. COUMADIN [Concomitant]
  3. DOCUSATE [Concomitant]
  4. IRON [Concomitant]
  5. ASCORBIC ACID [Concomitant]
  6. METFORMIN HCL [Concomitant]
  7. AVANDIA [Concomitant]
  8. ALLOPURINOL [Concomitant]
  9. ATENOLOL [Concomitant]
  10. LOTENSIN [Concomitant]
  11. LEVOXIL [Concomitant]

REACTIONS (31)
  - ABDOMINAL PAIN [None]
  - ABDOMINAL PAIN LOWER [None]
  - ANAEMIA POSTOPERATIVE [None]
  - ARTHRALGIA [None]
  - ATAXIA [None]
  - ATRIAL FIBRILLATION [None]
  - BACK PAIN [None]
  - CHEST PAIN [None]
  - DIABETES MELLITUS [None]
  - DIARRHOEA [None]
  - DIZZINESS [None]
  - DYSPNOEA [None]
  - ECONOMIC PROBLEM [None]
  - FATIGUE [None]
  - HYPERTENSION [None]
  - ILL-DEFINED DISORDER [None]
  - INTERNATIONAL NORMALISED RATIO INCREASED [None]
  - INTERVERTEBRAL DISC DEGENERATION [None]
  - INTERVERTEBRAL DISC PROTRUSION [None]
  - MULTIPLE INJURIES [None]
  - MUSCLE SPASMS [None]
  - MUSCULOSKELETAL PAIN [None]
  - MUSCULOSKELETAL STIFFNESS [None]
  - NAUSEA [None]
  - OEDEMA PERIPHERAL [None]
  - OSTEOARTHRITIS [None]
  - PAIN [None]
  - PALPITATIONS [None]
  - PROTHROMBIN TIME PROLONGED [None]
  - SPINAL COLUMN STENOSIS [None]
  - VOMITING [None]
